FAERS Safety Report 9127354 (Version 1)
Quarter: 2013Q1

REPORT INFORMATION
  Report Type: Spontaneous
  Country: US (occurrence: US)
  Receive Date: 20130228
  Receipt Date: 20130228
  Transmission Date: 20140127
  Serious: No
  Sender: FDA-Public Use
  Company Number: US-GLAXOSMITHKLINE-A0970826A

PATIENT
  Age: 37 Year
  Sex: Female

DRUGS (5)
  1. LAMOTRIGINE [Suspect]
     Indication: ATONIC SEIZURES
     Dosage: 2TAB PER DAY
     Route: 048
     Dates: start: 201109
  2. DEPAKOTE [Concomitant]
  3. LEXAPRO [Concomitant]
  4. SEROQUEL [Concomitant]
  5. CLONAZEPAM [Concomitant]

REACTIONS (5)
  - Rash [Not Recovered/Not Resolved]
  - Rash vesicular [Unknown]
  - Pruritus [Unknown]
  - Drooling [Unknown]
  - Foaming at mouth [Unknown]
